FAERS Safety Report 17473576 (Version 5)
Quarter: 2020Q2

REPORT INFORMATION
  Report Type: Spontaneous
  Country: US (occurrence: US)
  Receive Date: 20200228
  Receipt Date: 20200424
  Transmission Date: 20200713
  Serious: Yes (Death, Hospitalization)
  Sender: FDA-Public Use
  Company Number: US-PFIZER INC-2020087214

PATIENT
  Age: 4 Week
  Sex: Male
  Weight: 4 kg

DRUGS (3)
  1. ATROPINE SULFATE. [Suspect]
     Active Substance: ATROPINE SULFATE
     Indication: CHEMICAL POISONING
     Dosage: 0.1MG 5ML LS ABBJ
     Route: 065
  2. EPINEPHRINE. [Suspect]
     Active Substance: EPINEPHRINE
     Dosage: DRIP; IN THE TERTIARY CARE CENTRE
     Route: 065
  3. EPINEPHRINE. [Suspect]
     Active Substance: EPINEPHRINE
     Indication: CHEMICAL POISONING
     Dosage: IN THE EMERGENCY DEPARTMENT 1%1ML AMPULE
     Route: 065

REACTIONS (1)
  - Drug ineffective [Fatal]
